FAERS Safety Report 20141587 (Version 1)
Quarter: 2021Q4

REPORT INFORMATION
  Report Type: Spontaneous
  Country: US (occurrence: US)
  Receive Date: 20211202
  Receipt Date: 20211202
  Transmission Date: 20220303
  Serious: No
  Sender: FDA-Public Use
  Company Number: US-GLAXOSMITHKLINE-US2021AMR244174

PATIENT

DRUGS (8)
  1. ACYCLOVIR [Suspect]
     Active Substance: ACYCLOVIR
     Indication: Arthralgia
     Dosage: 400 MG, BID
     Dates: start: 2006
  2. ACYCLOVIR [Suspect]
     Active Substance: ACYCLOVIR
     Indication: Back pain
  3. ACYCLOVIR [Suspect]
     Active Substance: ACYCLOVIR
     Indication: Headache
  4. ACYCLOVIR [Suspect]
     Active Substance: ACYCLOVIR
     Indication: Rhinalgia
  5. ACYCLOVIR [Suspect]
     Active Substance: ACYCLOVIR
     Indication: Eye pain
  6. ACYCLOVIR [Suspect]
     Active Substance: ACYCLOVIR
     Indication: Herpes zoster
  7. PREDNISONE [Suspect]
     Active Substance: PREDNISONE
     Indication: Product used for unknown indication
     Dosage: UNK
  8. MODERNA COVID-19 VACCINE [Suspect]
     Active Substance: ELASOMERAN
     Indication: COVID-19 prophylaxis
     Dosage: UNK
     Dates: start: 202110

REACTIONS (5)
  - Headache [Recovering/Resolving]
  - Influenza like illness [Recovered/Resolved]
  - Sleep disorder [Unknown]
  - Ill-defined disorder [Unknown]
  - Feeling abnormal [Unknown]

NARRATIVE: CASE EVENT DATE: 20060101
